FAERS Safety Report 4758510-3 (Version None)
Quarter: 2005Q3

REPORT INFORMATION
  Report Type: 
  Country: None (occurrence: None)
  Receive Date: 20050830
  Receipt Date: 20050830
  Transmission Date: 20060218
  Serious: Yes (Hospitalization)
  Sender: FDA-Public Use
  Company Number: None

PATIENT
  Age: 63 Year
  Sex: Female

DRUGS (1)
  1. AUGMENTIN [Suspect]
     Indication: CELLULITIS
     Dates: start: 20050617, end: 20050623

REACTIONS (1)
  - ERYTHEMA MULTIFORME [None]
